FAERS Safety Report 4687363-7 (Version None)
Quarter: 2005Q2

REPORT INFORMATION
  Report Type: 
  Country: None (occurrence: None)
  Receive Date: 20050608
  Receipt Date: 20050526
  Transmission Date: 20051028
  Serious: Yes (Other)
  Sender: FDA-Public Use
  Company Number: 2005080960

PATIENT
  Age: 81 Year
  Sex: Female
  Weight: 58.9676 kg

DRUGS (7)
  1. CELEBREX [Suspect]
     Indication: ARTHRITIS
     Dosage: 200 MG (200 MG, 1 IN 1 D), ORAL
     Route: 048
     Dates: start: 20000101
  2. CELEBREX [Suspect]
     Indication: BONE DISORDER
     Dosage: 200 MG (200 MG, 1 IN 1 D), ORAL
     Route: 048
     Dates: start: 20000101
  3. LEXAPRO [Concomitant]
  4. RISEDRONATE (RISEDRONIC ACID) [Concomitant]
  5. MIDODRINE (MIDODRINE) [Concomitant]
  6. CLARINEX [Concomitant]
  7. NEURONTIN [Concomitant]

REACTIONS (2)
  - ABDOMINAL ADHESIONS [None]
  - DIARRHOEA [None]
